FAERS Safety Report 4850688-6 (Version None)
Quarter: 2005Q4

REPORT INFORMATION
  Report Type: 
  Country: None (occurrence: None)
  Receive Date: 20051208
  Receipt Date: 20051116
  Transmission Date: 20060501
  Serious: No
  Sender: FDA-Public Use
  Company Number: USA040363321

PATIENT
  Age: 66 Year
  Sex: Female

DRUGS (9)
  1. FORTEO [Suspect]
     Dates: start: 20040101
  2. LOPRESSOR [Concomitant]
  3. PRILOSEC [Concomitant]
  4. FORTEO [Concomitant]
  5. CANDESARTAN CILEXETIL (CANDESARTAN CILEXETIL) [Concomitant]
  6. CLARINEX/USA/(DESLORATADINE) [Concomitant]
  7. LIPITOR [Concomitant]
  8. CELECOXIB (CELECOXIB) [Concomitant]
  9. PAXIL [Concomitant]

REACTIONS (2)
  - RASH [None]
  - RENAL IMPAIRMENT [None]
